FAERS Safety Report 7519029-X (Version None)
Quarter: 2011Q2

REPORT INFORMATION
  Report Type: 
  Country: None (occurrence: None)
  Receive Date: 20110523
  Receipt Date: 20110509
  Transmission Date: 20111010
  Serious: Yes (Hospitalization)
  Sender: FDA-Public Use
  Company Number: 2011MA005706

PATIENT
  Age: 62 Year
  Sex: Female

DRUGS (1)
  1. PROPYLTHIOURACIL TAB [Suspect]
     Indication: HYPERTHYROIDISM
     Dosage: 300 MG, OD, PO
     Route: 048

REACTIONS (7)
  - VASCULITIS NECROTISING [None]
  - PULMONARY ALVEOLAR HAEMORRHAGE [None]
  - OCCULT BLOOD POSITIVE [None]
  - ANAEMIA [None]
  - RENAL IMPAIRMENT [None]
  - ANTINEUTROPHIL CYTOPLASMIC ANTIBODY POSITIVE [None]
  - HAEMATURIA [None]
